FAERS Safety Report 6142920-6 (Version None)
Quarter: 2009Q2

REPORT INFORMATION
  Report Type: 
  Country: None (occurrence: None)
  Receive Date: 20090403
  Receipt Date: 20090330
  Transmission Date: 20091009
  Serious: Yes (Hospitalization)
  Sender: FDA-Public Use
  Company Number: ES-TEVA-189741ISR

PATIENT
  Sex: Male

DRUGS (4)
  1. AMOXICILLIN [Suspect]
     Indication: RESPIRATORY TRACT INFECTION
     Dates: start: 20070101
  2. CLARITHROMYCIN [Suspect]
     Indication: RESPIRATORY TRACT INFECTION
     Dates: start: 20070101
  3. IBUPROFEN [Suspect]
     Indication: RESPIRATORY TRACT INFECTION
     Dates: start: 20070101
  4. ACETAMINOPHEN [Suspect]
     Indication: RESPIRATORY TRACT INFECTION
     Dates: start: 20070101

REACTIONS (1)
  - APLASTIC ANAEMIA [None]
